FAERS Safety Report 6672132-9 (Version None)
Quarter: 2010Q2

REPORT INFORMATION
  Report Type: 
  Country: None (occurrence: None)
  Receive Date: 20100407
  Receipt Date: 20100407
  Transmission Date: 20101027
  Serious: Yes (Hospitalization)
  Sender: FDA-Public Use
  Company Number: None

PATIENT
  Age: 78 Year
  Sex: Male
  Weight: 87 kg

DRUGS (1)
  1. SIMVASTATIN [Suspect]
     Indication: DYSLIPIDAEMIA
     Dosage: 40MG DAILY PO
     Route: 048
     Dates: start: 20070204, end: 20090416

REACTIONS (4)
  - ASTHENIA [None]
  - DYSARTHRIA [None]
  - FALL [None]
  - RHABDOMYOLYSIS [None]
